FAERS Safety Report 9672942 (Version 1)
Quarter: 2013Q4

REPORT INFORMATION
  Report Type: Spontaneous
  Country: US (occurrence: US)
  Receive Date: 20131106
  Receipt Date: 20131106
  Transmission Date: 20140711
  Serious: No
  Sender: FDA-Public Use
  Company Number: US-AMGEN-USASP2013069370

PATIENT
  Age: 55 Year
  Sex: Female
  Weight: 97.05 kg

DRUGS (14)
  1. ENBREL [Suspect]
     Indication: PRODUCT USED FOR UNKNOWN INDICATION
     Dosage: 50 MG, QWK
     Route: 058
  2. NEXIUM                             /01479302/ [Concomitant]
     Dosage: 20 MG, UNK
  3. CYMBALTA [Concomitant]
     Dosage: 20 MG, UNK
  4. MORPHINE SULFATE [Concomitant]
     Dosage: 10/0.5ML
  5. LIPITOR [Concomitant]
     Dosage: 10 MG, UNK
  6. PREMPRO [Concomitant]
     Dosage: 0.625-2.5
  7. GABAPENTIN [Concomitant]
     Dosage: 100 MG, UNK
  8. METHOTREXATE [Concomitant]
     Dosage: 1 G, UNK
  9. FOLIC ACID [Concomitant]
     Dosage: UNK
  10. BIOTIN [Concomitant]
     Dosage: 500 UNK, UNK
  11. CALCIUM +D                         /00944201/ [Concomitant]
     Dosage: UNK
  12. MULTIVITAMINS W/MINERALS [Concomitant]
  13. ASPIRIN [Concomitant]
     Dosage: 81 MG, UNK
  14. PREDNISONE [Concomitant]
     Dosage: 10 MG, UNK

REACTIONS (2)
  - Pain [Unknown]
  - Fatigue [Unknown]
